FAERS Safety Report 17094993 (Version 1)
Quarter: 2019Q4

REPORT INFORMATION
  Report Type: Spontaneous
  Country: DE (occurrence: DE)
  Receive Date: 20191130
  Receipt Date: 20191130
  Transmission Date: 20200122
  Serious: Yes (Other)
  Sender: FDA-Public Use
  Company Number: DE-ACCORD-162188

PATIENT
  Age: 70 Year
  Sex: Female

DRUGS (3)
  1. BENDAMUSTINE/BENDAMUSTINE HYDROCHLORIDE [Suspect]
     Active Substance: BENDAMUSTINE HYDROCHLORIDE
     Indication: ASCITES
     Dosage: UNK UNK, CYCLIC
     Route: 042
  2. RITUXIMAB. [Suspect]
     Active Substance: RITUXIMAB
     Indication: PLEURAL EFFUSION
     Dosage: UNK UNK, UNKNOWN FREQ.
     Route: 065
  3. IBRUTINIB [Suspect]
     Active Substance: IBRUTINIB
     Indication: ASCITES
     Dosage: UNK UNK, UNKNOWN FREQ.
     Route: 065
     Dates: start: 201505, end: 201610

REACTIONS (3)
  - Off label use [Unknown]
  - Drug ineffective [Unknown]
  - Hepatitis E [Recovered/Resolved]

NARRATIVE: CASE EVENT DATE: 201611
